FAERS Safety Report 25662460 (Version 3)
Quarter: 2025Q4

REPORT INFORMATION
  Report Type: Report from Study
  Country: EU (occurrence: EU)
  Receive Date: 20250810
  Receipt Date: 20251225
  Transmission Date: 20260117
  Serious: Yes (Other)
  Sender: ABBVIE
  Company Number: EU-ABBVIE-6304295

PATIENT
  Age: 69 Year
  Sex: Male
  Weight: 75 kg

DRUGS (4)
  1. CARBIDOPA\LEVODOPA [Suspect]
     Active Substance: CARBIDOPA\LEVODOPA
     Indication: Parkinson^s disease
     Dosage: FIRST ADMIN DATE: 2025?REDUCE THE CONTINUOUS DOSE BY 0.2 ML TO 2.5 ML/HOUR.?USES AN EXTRA DOSE AB...
     Route: 050
  2. CARBIDOPA\LEVODOPA [Suspect]
     Active Substance: CARBIDOPA\LEVODOPA
     Dosage: USES THE EXTRA DOSE TWICE A DAY ON AVERAGE?LAST ADMIN DATE- 2025
     Route: 050
     Dates: start: 20250519
  3. CARBIDOPA\LEVODOPA [Suspect]
     Active Substance: CARBIDOPA\LEVODOPA
     Dosage: FIRST ADMIN DATE: 2025?LAST ADMIN DATE: 2025?USES THE EXTRA DOSE TWICE A DAY ON AVERAGE
     Route: 050
  4. BENSERAZIDE HYDROCHLORIDE\LEVODOPA [Concomitant]
     Active Substance: BENSERAZIDE HYDROCHLORIDE\LEVODOPA
     Indication: Sleep disorder

REACTIONS (29)
  - Depressed level of consciousness [Not Recovered/Not Resolved]
  - On and off phenomenon [Not Recovered/Not Resolved]
  - Gait disturbance [Not Recovered/Not Resolved]
  - Thinking abnormal [Not Recovered/Not Resolved]
  - Negative thoughts [Not Recovered/Not Resolved]
  - Stress [Unknown]
  - Frequent bowel movements [Unknown]
  - Hallucination, visual [Not Recovered/Not Resolved]
  - Dyskinesia [Not Recovered/Not Resolved]
  - Obsessive-compulsive disorder [Recovering/Resolving]
  - Stoma site discharge [Not Recovered/Not Resolved]
  - Nightmare [Unknown]
  - Restlessness [Unknown]
  - Insomnia [Unknown]
  - Memory impairment [Unknown]
  - Device issue [Unknown]
  - Stoma site erythema [Unknown]
  - Fatigue [Not Recovered/Not Resolved]
  - Bradykinesia [Not Recovered/Not Resolved]
  - Muscle rigidity [Not Recovered/Not Resolved]
  - Freezing phenomenon [Not Recovered/Not Resolved]
  - Nocturia [Not Recovered/Not Resolved]
  - Abnormal dreams [Recovering/Resolving]
  - Dyschezia [Not Recovered/Not Resolved]
  - Hallucination [Not Recovered/Not Resolved]
  - Fibroma [Recovered/Resolved]
  - Haemorrhage [Not Recovered/Not Resolved]
  - Dystonia [Unknown]
  - Muscle spasms [Unknown]

NARRATIVE: CASE EVENT DATE: 20250101
